FAERS Safety Report 14680700 (Version 1)
Quarter: 2018Q1

REPORT INFORMATION
  Report Type: Spontaneous
  Country: US (occurrence: US)
  Receive Date: 20180326
  Receipt Date: 20180326
  Transmission Date: 20180509
  Serious: No
  Sender: FDA-Public Use
  Company Number: US-TEVA-2018-US-873982

PATIENT
  Sex: Male

DRUGS (2)
  1. MYCOPHENOLATE MOFETIL. [Suspect]
     Active Substance: MYCOPHENOLATE MOFETIL
     Indication: AUTOIMMUNE HEPATITIS
     Route: 065
     Dates: start: 2018, end: 20180314
  2. PREDNISONE. [Concomitant]
     Active Substance: PREDNISONE
     Dosage: 30 MILLIGRAM DAILY;
     Route: 065

REACTIONS (7)
  - Hypoaesthesia [Unknown]
  - Back pain [Unknown]
  - Muscular weakness [Unknown]
  - Fatigue [Unknown]
  - Muscle tone disorder [Unknown]
  - Tremor [Unknown]
  - Drug ineffective [Unknown]
